FAERS Safety Report 13719459 (Version 3)
Quarter: 2017Q3

REPORT INFORMATION
  Report Type: Spontaneous
  Country: US (occurrence: US)
  Receive Date: 20170705
  Receipt Date: 20170831
  Transmission Date: 20171127
  Serious: No
  Sender: FDA-Public Use
  Company Number: US-ALLERGAN-1727629US

PATIENT
  Age: 48 Year
  Sex: Female

DRUGS (3)
  1. KYBELLA [Suspect]
     Active Substance: DEOXYCHOLIC ACID
     Indication: FAT TISSUE INCREASED
     Dosage: 4.6 ML, SINGLE
     Route: 058
     Dates: start: 20170620, end: 20170620
  2. KYBELLA [Suspect]
     Active Substance: DEOXYCHOLIC ACID
     Dosage: UNK
     Route: 058
     Dates: start: 20170620, end: 20170620
  3. KYBELLA [Suspect]
     Active Substance: DEOXYCHOLIC ACID
     Dosage: UNK, SINGLE
     Route: 058
     Dates: start: 20170620, end: 20170620

REACTIONS (5)
  - Injection site warmth [Unknown]
  - Pyrexia [Unknown]
  - Ear discomfort [Unknown]
  - Injection site erythema [Unknown]
  - Ear pain [Unknown]

NARRATIVE: CASE EVENT DATE: 201706
